FAERS Safety Report 4780945-3 (Version None)
Quarter: 2005Q3

REPORT INFORMATION
  Report Type: 
  Country: None (occurrence: None)
  Receive Date: 20050926
  Receipt Date: 20050830
  Transmission Date: 20060218
  Serious: Yes (Death, Hospitalization)
  Sender: FDA-Public Use
  Company Number: MAG-2005-00000379

PATIENT
  Age: 78 Year
  Sex: Male

DRUGS (22)
  1. OXYCODONE HCL [Suspect]
     Indication: CANCER PAIN
     Dosage: 50 MG; 60 MG; 40 MG; 35 MG; 30 MG; 15 MG, DAILY, ORAL
     Route: 048
     Dates: start: 20050210, end: 20050213
  2. OXYCODONE HCL [Suspect]
     Indication: CANCER PAIN
     Dosage: 50 MG; 60 MG; 40 MG; 35 MG; 30 MG; 15 MG, DAILY, ORAL
     Route: 048
     Dates: start: 20050214, end: 20050214
  3. OXYCODONE HCL [Suspect]
     Indication: CANCER PAIN
     Dosage: 50 MG; 60 MG; 40 MG; 35 MG; 30 MG; 15 MG, DAILY, ORAL
     Route: 048
     Dates: start: 20050215, end: 20050620
  4. OXYCODONE HCL [Suspect]
     Indication: CANCER PAIN
     Dosage: 50 MG; 60 MG; 40 MG; 35 MG; 30 MG; 15 MG, DAILY, ORAL
     Route: 048
     Dates: start: 20050621, end: 20050621
  5. OXYCODONE HCL [Suspect]
     Indication: CANCER PAIN
     Dosage: 50 MG; 60 MG; 40 MG; 35 MG; 30 MG; 15 MG, DAILY, ORAL
     Route: 048
     Dates: start: 20050622, end: 20050704
  6. OXYCODONE HCL [Suspect]
     Indication: CANCER PAIN
     Dosage: 50 MG; 60 MG; 40 MG; 35 MG; 30 MG; 15 MG, DAILY, ORAL
     Route: 048
     Dates: start: 20050705, end: 20050705
  7. MORPHINE [Suspect]
     Indication: NAUSEA
     Dosage: 30-40MG, DAILY, ORAL
     Route: 048
     Dates: start: 20050118, end: 20050202
  8. OXYCODONE HCL [Suspect]
     Indication: ARRHYTHMIA
     Dosage: 10 MG, DAILY, ORAL; 5 MG, DAILY, ORAL
     Route: 048
     Dates: start: 20050209, end: 20050307
  9. OXYCODONE HCL [Suspect]
     Indication: ARRHYTHMIA
     Dosage: 10 MG, DAILY, ORAL; 5 MG, DAILY, ORAL
     Route: 048
     Dates: start: 20050308
  10. LOXONIN (LOXOPROFEN SODIUM) [Suspect]
     Indication: CANCER PAIN
     Dosage: 180 MG, DAILY, ORAL
     Route: 048
     Dates: start: 20050210, end: 20050705
  11. ASPIRIN [Suspect]
     Indication: PROPHYLAXIS
     Dosage: 100 MG, DAILY, ORAL
     Route: 048
     Dates: start: 20050218, end: 20050705
  12. BLOPRESS (CANDESARTAN CILEXETIL) [Suspect]
     Indication: HYPERTENSION
     Dosage: 8 MG, DAILY, ORAL
     Route: 048
     Dates: start: 20050210, end: 20050705
  13. ALLOPURINOL [Suspect]
     Indication: HYPERURICAEMIA
     Dosage: 100 MG, DAILY, ORAL
     Route: 048
     Dates: start: 20050210, end: 20050705
  14. DISOPYRAMIDE [Suspect]
     Indication: ARRHYTHMIA
     Dosage: 300 MG, DAILY, ORAL
     Route: 048
     Dates: start: 20050210, end: 20050705
  15. LANSOPRAZOLE [Suspect]
     Indication: PROPHYLAXIS
     Dosage: 15 MG, DAILY, ORAL
     Route: 048
     Dates: start: 20050323, end: 20050705
  16. VITAMEDIN CAPSULE (BENFOTIAMINE, CYANOCOBALAMIN, PYRIDOXINE HYDROCHLOR [Concomitant]
  17. FENTANYL [Concomitant]
  18. LEVOFLOXACIN [Concomitant]
  19. SOLDEM 3A (SODIUM LACTATE, POTASSIUM CHLORIDE, SODIUM CHLORIDE, CARBOH [Concomitant]
  20. VITAMEDIN INTRAVENOUS (CYANOCOBALAMIN, THIAMINE DISULFIDE, PYRIDOXINE [Concomitant]
  21. GLUCOSE (GLUCOSE) [Concomitant]
  22. PHYSIO 35 [Concomitant]

REACTIONS (20)
  - ANOREXIA [None]
  - ASTHENIA [None]
  - BLOOD CREATININE INCREASED [None]
  - BLOOD GLUCOSE DECREASED [None]
  - BLOOD UREA INCREASED [None]
  - COLD SWEAT [None]
  - CONSTIPATION [None]
  - DEPRESSION [None]
  - DYSURIA [None]
  - HEPATIC ATROPHY [None]
  - HEPATIC FAILURE [None]
  - HEPATOCELLULAR DAMAGE [None]
  - NAUSEA [None]
  - ORAL INTAKE REDUCED [None]
  - PLATELET COUNT INCREASED [None]
  - PNEUMONIA ASPIRATION [None]
  - SOMNOLENCE [None]
  - UROBILIN URINE PRESENT [None]
  - VOMITING [None]
  - XEROSIS [None]
